FAERS Safety Report 6534927-1 (Version None)
Quarter: 2010Q1

REPORT INFORMATION
  Report Type: 
  Country: None (occurrence: None)
  Receive Date: 20100112
  Receipt Date: 20100107
  Transmission Date: 20100710
  Serious: Yes (Other)
  Sender: FDA-Public Use
  Company Number: US-ABBOTT-10P-163-0618128-00

PATIENT
  Sex: Male
  Weight: 84 kg

DRUGS (3)
  1. WARFARIN [Suspect]
     Indication: PULMONARY EMBOLISM
     Dosage: 5 - 10 MG
     Dates: start: 20090402, end: 20090405
  2. SUNITINIB MALATE [Suspect]
     Indication: RENAL CELL CARCINOMA
     Route: 048
     Dates: start: 20090402
  3. HEPARIN [Suspect]
     Indication: PULMONARY EMBOLISM
     Dosage: 25000 UNITS PER 250 ML
     Route: 041
     Dates: start: 20090402, end: 20090406

REACTIONS (4)
  - CARDIAC ARREST [None]
  - PULMONARY EMBOLISM [None]
  - PULMONARY HAEMORRHAGE [None]
  - RESPIRATORY FAILURE [None]
